FAERS Safety Report 18734958 (Version 1)
Quarter: 2021Q1

REPORT INFORMATION
  Report Type: Spontaneous
  Country: US (occurrence: US)
  Receive Date: 20210113
  Receipt Date: 20210113
  Transmission Date: 20210419
  Serious: No
  Sender: FDA-Public Use
  Company Number: US-BAYER-2021-021020

PATIENT
  Age: 74 Year
  Sex: Female

DRUGS (1)
  1. CLARITIN?D 12 HOUR [Suspect]
     Active Substance: LORATADINE\PSEUDOEPHEDRINE SULFATE
     Indication: SINUSITIS
     Dosage: 0.5 DF
     Route: 065

REACTIONS (4)
  - Insomnia [Unknown]
  - Nervousness [Unknown]
  - Product use in unapproved indication [Unknown]
  - Palpitations [Unknown]
